FAERS Safety Report 24463938 (Version 1)
Quarter: 2024Q4

REPORT INFORMATION
  Report Type: Report from Study
  Country: US (occurrence: US)
  Receive Date: 20241018
  Receipt Date: 20241018
  Transmission Date: 20250115
  Serious: No
  Sender: ROCHE
  Company Number: US-ROCHE-3485309

PATIENT
  Age: 37 Year
  Sex: Female
  Weight: 63.0 kg

DRUGS (2)
  1. XOLAIR [Suspect]
     Active Substance: OMALIZUMAB
     Indication: Asthma
     Dosage: , LAST DATE OF TREATMENT: 26/OCT/2023, ANTICIPATED DATE OF TREATMENT: 09/NOV/2023
     Route: 065
  2. ACTEMRA [Suspect]
     Active Substance: TOCILIZUMAB
     Indication: Rheumatoid arthritis
     Route: 065

REACTIONS (1)
  - Malaise [Unknown]
